FAERS Safety Report 7812256-3 (Version None)
Quarter: 2011Q4

REPORT INFORMATION
  Report Type: 
  Country: None (occurrence: None)
  Receive Date: 20111013
  Receipt Date: 20110926
  Transmission Date: 20120403
  Serious: Yes (Other)
  Sender: FDA-Public Use
  Company Number: BR-US-EMD SERONO, INC.-7087726

PATIENT
  Sex: Female

DRUGS (7)
  1. IBUPROFEN [Concomitant]
  2. MANTIDAN [Concomitant]
  3. BROMAZEPAM [Concomitant]
  4. BACLOFEN [Concomitant]
  5. REBIF [Suspect]
     Indication: RELAPSING-REMITTING MULTIPLE SCLEROSIS
     Dates: start: 20061012
  6. DILPRESS [Concomitant]
  7. PAMELOR [Concomitant]

REACTIONS (2)
  - EAR INFECTION [None]
  - TYMPANIC MEMBRANE PERFORATION [None]
